FAERS Safety Report 10427867 (Version 5)
Quarter: 2014Q4

REPORT INFORMATION
  Report Type: Report from Study
  Country: ES (occurrence: ES)
  Receive Date: 20140903
  Receipt Date: 20141030
  Transmission Date: 20150528
  Serious: Yes (Life-Threatening, Hospitalization)
  Sender: FDA-Public Use
  Company Number: ES-BAYER-2014-128333

PATIENT
  Age: 74 Year
  Sex: Female
  Weight: 81.8 kg

DRUGS (13)
  1. ATENOLOL. [Concomitant]
     Active Substance: ATENOLOL
     Indication: ARRHYTHMIA
     Dosage: 50 MG DAILY
     Route: 048
     Dates: end: 20140901
  2. LYRICA [Concomitant]
     Active Substance: PREGABALIN
     Indication: DEMENTIA ALZHEIMER^S TYPE
     Dosage: 75 MG/24 H
     Route: 048
     Dates: end: 20140822
  3. REGORAFENIB [Suspect]
     Active Substance: REGORAFENIB
     Indication: COLORECTAL CANCER
     Dosage: 120 MG DAILY
     Route: 048
     Dates: start: 20140528
  4. ORFIDAL [Concomitant]
     Active Substance: LORAZEPAM
     Indication: INSOMNIA
     Dosage: 1 TABLET / DAY
     Route: 058
     Dates: start: 20140902, end: 20140917
  5. RED BLOOD CELLS, CONCENTRATED [Concomitant]
     Active Substance: HUMAN RED BLOOD CELL
     Indication: ANAEMIA
     Dosage: 1 CONCENTRATED PER DAY
     Route: 042
     Dates: start: 20140829, end: 20140830
  6. RAMIPRIL. [Concomitant]
     Active Substance: RAMIPRIL
     Indication: HYPERTENSION
     Dosage: UNK
     Dates: end: 20140822
  7. ATENOLOL. [Concomitant]
     Active Substance: ATENOLOL
     Indication: ARRHYTHMIA
     Dosage: 50 MG/24 H
     Route: 048
     Dates: start: 20140503, end: 20140827
  8. ATENOLOL. [Concomitant]
     Active Substance: ATENOLOL
     Indication: ARRHYTHMIA
     Dosage: 50 MG DAILY
     Route: 048
     Dates: start: 20140910
  9. CLEXANE [Concomitant]
     Active Substance: ENOXAPARIN SODIUM
     Indication: PROPHYLAXIS
     Dosage: 40 MG DAILY
     Route: 058
     Dates: start: 20140908, end: 20140918
  10. PROVISACOR [Concomitant]
     Active Substance: ROSUVASTATIN
     Indication: HYPERCHOLESTEROLAEMIA
     Dosage: 20 MG/24 H
     Route: 048
     Dates: end: 20140822
  11. ESOMEPRAZOLE [Concomitant]
     Active Substance: ESOMEPRAZOLE
     Indication: PROPHYLAXIS
     Dosage: 20 MG/24 H
     Route: 048
     Dates: end: 20140822
  12. REGORAFENIB [Suspect]
     Active Substance: REGORAFENIB
     Indication: COLORECTAL CANCER
     Dosage: 120 MG DAILY
     Route: 048
     Dates: end: 20140919
  13. REGORAFENIB [Suspect]
     Active Substance: REGORAFENIB
     Indication: COLORECTAL CANCER
     Dosage: 120 MG DAILY
     Route: 048
     Dates: start: 20140819

REACTIONS (1)
  - Infected neoplasm [Recovered/Resolved]

NARRATIVE: CASE EVENT DATE: 20140821
